FAERS Safety Report 21325176 (Version 1)
Quarter: 2022Q3

REPORT INFORMATION
  Report Type: Spontaneous
  Country: US (occurrence: US)
  Receive Date: 20220912
  Receipt Date: 20220912
  Transmission Date: 20221027
  Serious: Yes (Hospitalization, Other)
  Sender: FDA-Public Use
  Company Number: US-BRISTOL-MYERS SQUIBB COMPANY-2022-102202

PATIENT
  Age: 83 Year
  Sex: Female
  Weight: 65.77 kg

DRUGS (5)
  1. APIXABAN [Suspect]
     Active Substance: APIXABAN
     Indication: Cerebrovascular accident prophylaxis
     Dosage: DOSE : 5MG;     FREQ : TWICE DAILY|ONCE DAILY
     Route: 048
     Dates: start: 2019
  2. APIXABAN [Suspect]
     Active Substance: APIXABAN
     Route: 048
  3. HYDROCODONE [Concomitant]
     Active Substance: HYDROCODONE
     Indication: Pain
     Dosage: DOSE=EVERY 4 HOURS
     Route: 065
  4. AMIODARONE [Concomitant]
     Active Substance: AMIODARONE
     Indication: Product used for unknown indication
     Route: 065
  5. NORVASC [Concomitant]
     Active Substance: AMLODIPINE BESYLATE
     Indication: Product used for unknown indication
     Route: 065

REACTIONS (7)
  - Fall [Unknown]
  - Head injury [Unknown]
  - Dysphagia [Unknown]
  - Haemorrhage [Unknown]
  - Contusion [Unknown]
  - Off label use [Unknown]
  - Intentional product use issue [Unknown]
